FAERS Safety Report 7895344-5 (Version None)
Quarter: 2011Q4

REPORT INFORMATION
  Report Type: 
  Country: None (occurrence: None)
  Receive Date: 20111106
  Receipt Date: 20110825
  Transmission Date: 20120403
  Serious: No
  Sender: FDA-Public Use
  Company Number: US-AMGEN-USASP2011043515

PATIENT
  Age: 40 Year
  Sex: Male

DRUGS (1)
  1. ENBREL [Suspect]
     Indication: ANKYLOSING SPONDYLITIS
     Dosage: 50 MG, QWK
     Dates: start: 20030801

REACTIONS (5)
  - TINEA PEDIS [None]
  - RASH ERYTHEMATOUS [None]
  - RESPIRATORY TRACT CONGESTION [None]
  - THROAT IRRITATION [None]
  - PRODUCTIVE COUGH [None]
